FAERS Safety Report 7170653-6 (Version None)
Quarter: 2010Q4

REPORT INFORMATION
  Report Type: 
  Country: None (occurrence: None)
  Receive Date: 20101217
  Receipt Date: 20101208
  Transmission Date: 20110411
  Serious: Yes (Other)
  Sender: FDA-Public Use
  Company Number: B0685986A

PATIENT
  Age: 60 Year
  Sex: Female

DRUGS (1)
  1. FORTUM [Suspect]
     Indication: INFECTION
     Dosage: 100MG PER DAY
     Route: 037

REACTIONS (8)
  - FAECAL INCONTINENCE [None]
  - FOAMING AT MOUTH [None]
  - GRAND MAL CONVULSION [None]
  - LOSS OF CONSCIOUSNESS [None]
  - MUSCLE SPASMS [None]
  - MUSCULAR WEAKNESS [None]
  - TIC [None]
  - URINARY INCONTINENCE [None]
